FAERS Safety Report 6266118-6 (Version None)
Quarter: 2009Q3

REPORT INFORMATION
  Report Type: 
  Country: None (occurrence: None)
  Receive Date: 20090713
  Receipt Date: 20090710
  Transmission Date: 20100115
  Serious: Yes (Other)
  Sender: FDA-Public Use
  Company Number: ES-BRISTOL-MYERS SQUIBB COMPANY-14687057

PATIENT
  Age: 73 Year
  Sex: Female

DRUGS (10)
  1. ORENCIA [Suspect]
     Indication: RHEUMATOID ARTHRITIS
     Dosage: 2 ND AND 3 RD INFUSIONS;02JUL09 2 VIALS
     Route: 042
     Dates: start: 20090521
  2. LEVOTHROID [Concomitant]
  3. METHOTREXATE SODIUM [Concomitant]
     Dates: start: 20020101
  4. INFLIXIMAB [Concomitant]
     Dates: start: 20020101
  5. LEFLUNOMIDE [Concomitant]
     Dates: start: 20020101
  6. CHLOROQUINE [Concomitant]
     Dates: start: 20020101
  7. METOJECT [Concomitant]
     Dates: start: 20080801
  8. FOLIC ACID [Concomitant]
     Dates: start: 20080801
  9. CORTICOSTEROID [Concomitant]
     Dates: start: 20080801
  10. IDEOS [Concomitant]

REACTIONS (4)
  - BLINDNESS UNILATERAL [None]
  - MACULAR OEDEMA [None]
  - SKIN LESION [None]
  - THROMBOSIS [None]
